FAERS Safety Report 16779587 (Version 14)
Quarter: 2025Q1

REPORT INFORMATION
  Report Type: Spontaneous
  Country: US (occurrence: US)
  Receive Date: 20190906
  Receipt Date: 20250224
  Transmission Date: 20250408
  Serious: Yes (Disabling, Other)
  Sender: PFIZER
  Company Number: US-PFIZER INC-2018524894

PATIENT
  Age: 62 Year
  Sex: Female

DRUGS (3)
  1. XELJANZ [Suspect]
     Active Substance: TOFACITINIB CITRATE
     Indication: Colitis ulcerative
  2. XELJANZ [Suspect]
     Active Substance: TOFACITINIB CITRATE
  3. XELJANZ [Suspect]
     Active Substance: TOFACITINIB CITRATE
     Dosage: 5 MG, 2X/DAY
     Route: 048
     Dates: start: 201809

REACTIONS (20)
  - Haemorrhage [Unknown]
  - Deafness unilateral [Not Recovered/Not Resolved]
  - Loss of consciousness [Unknown]
  - Colitis ulcerative [Unknown]
  - Product dose omission issue [Unknown]
  - Malaise [Unknown]
  - Thinking abnormal [Unknown]
  - Feeling hot [Unknown]
  - Presyncope [Unknown]
  - Back pain [Not Recovered/Not Resolved]
  - Eye disorder [Unknown]
  - Gastrointestinal disorder [Unknown]
  - Anorectal disorder [Unknown]
  - Mouth ulceration [Unknown]
  - Pyrexia [Recovered/Resolved]
  - Vomiting [Unknown]
  - Blister [Unknown]
  - Illness [Recovered/Resolved]
  - COVID-19 [Recovered/Resolved]
  - Abdominal pain [Unknown]

NARRATIVE: CASE EVENT DATE: 20220101
